FAERS Safety Report 7509231-5 (Version None)
Quarter: 2011Q2

REPORT INFORMATION
  Report Type: 
  Country: None (occurrence: None)
  Receive Date: 20110527
  Receipt Date: 20110524
  Transmission Date: 20111010
  Serious: Yes (Other)
  Sender: FDA-Public Use
  Company Number: GB-ROCHE-649702

PATIENT
  Age: 23 Year
  Weight: 67 kg

DRUGS (3)
  1. AMOXICILLIN [Concomitant]
     Dosage: DRUG NAME REPOORTED AS CO-AMOXICILLIN
  2. CERAZETTE [Concomitant]
  3. TAMIFLU [Suspect]
     Route: 048
     Dates: start: 20090712, end: 20090714

REACTIONS (2)
  - SWELLING FACE [None]
  - URTICARIA [None]
